FAERS Safety Report 22803703 (Version 3)
Quarter: 2025Q3

REPORT INFORMATION
  Report Type: Report from Study
  Country: US (occurrence: US)
  Receive Date: 20230809
  Receipt Date: 20250902
  Transmission Date: 20251021
  Serious: No
  Sender: NOVARTIS
  Company Number: US-002147023-NVSC2023US173668

PATIENT
  Sex: Female

DRUGS (7)
  1. TRIAMCINOLONE [Suspect]
     Active Substance: TRIAMCINOLONE
     Indication: Psoriasis
     Route: 065
  2. METHOTREXATE [Suspect]
     Active Substance: METHOTREXATE
     Indication: Psoriasis
     Route: 065
  3. KETOCONAZOLE [Suspect]
     Active Substance: KETOCONAZOLE
     Indication: Psoriasis
     Route: 065
  4. TACROLIMUS [Suspect]
     Active Substance: TACROLIMUS
     Indication: Psoriasis
     Route: 065
  5. FLUOCINONIDE [Suspect]
     Active Substance: FLUOCINONIDE
     Indication: Psoriasis
     Route: 065
  6. CLOTRIMAZOLE [Suspect]
     Active Substance: CLOTRIMAZOLE
     Indication: Psoriasis
     Route: 065
  7. HYDROCORTISONE [Suspect]
     Active Substance: HYDROCORTISONE
     Indication: Psoriasis
     Route: 065

REACTIONS (4)
  - Quality of life decreased [Unknown]
  - Drug ineffective [Unknown]
  - Psoriasis [Unknown]
  - Product use in unapproved indication [Unknown]
